FAERS Safety Report 9356786 (Version 1)
Quarter: 2013Q2

REPORT INFORMATION
  Report Type: Report from Study
  Country: FR (occurrence: FR)
  Receive Date: 20130619
  Receipt Date: 20130619
  Transmission Date: 20140414
  Serious: Yes (Death, Hospitalization, Other)
  Sender: FDA-Public Use
  Company Number: PHHY2010FR04536

PATIENT
  Age: 80 Year
  Sex: Male

DRUGS (14)
  1. STI571 [Suspect]
     Indication: CHRONIC MYELOID LEUKAEMIA
     Dosage: 800 MG, DAILY
     Dates: start: 200701, end: 20090611
  2. STI571 [Suspect]
     Dosage: 600 MG, QD
  3. TRENTADIL [Concomitant]
     Dosage: UNK UKN, UNK
  4. SERETIDE [Concomitant]
     Dosage: UNK UKN, UNK
  5. JOSIR [Concomitant]
     Dosage: UNK UKN, UNK
  6. SPRYCEL [Concomitant]
     Dosage: UNK UKN, UNK
  7. SPIRIVA [Concomitant]
     Dosage: UNK UKN, UNK
  8. ESOMEPRAZOLE [Concomitant]
     Dosage: UNK UKN, UNK
  9. BRICANYL [Concomitant]
     Dosage: UNK UKN, UNK
  10. TEMERIT [Concomitant]
     Dosage: UNK UKN, UNK
  11. COVERSYL                                /BEL/ [Concomitant]
     Dosage: UNK UKN, UNK
  12. ESCITALOPRAM [Concomitant]
     Dosage: UNK UKN, UNK
  13. KARDEGIC [Concomitant]
     Dosage: UNK UKN, UNK
  14. DOMPERIDONE [Concomitant]
     Dosage: UNK UKN, UNK

REACTIONS (17)
  - Drug intolerance [Unknown]
  - Acute respiratory distress syndrome [Fatal]
  - Hypoxic-ischaemic encephalopathy [Fatal]
  - Pneumonia [Unknown]
  - Ischaemic cardiomyopathy [Unknown]
  - Ischaemic limb pain [Unknown]
  - Left ventricular failure [Unknown]
  - Left ventricular dysfunction [Unknown]
  - Ischaemia [Unknown]
  - Coronary artery disease [Unknown]
  - Myocardial infarction [Unknown]
  - Peripheral ischaemia [Unknown]
  - Anaemia [Unknown]
  - Haemoglobin decreased [Unknown]
  - Acute pulmonary oedema [Unknown]
  - Malnutrition [Unknown]
  - Drug ineffective [Unknown]
